FAERS Safety Report 7336431-X (Version None)
Quarter: 2011Q1

REPORT INFORMATION
  Report Type: 
  Country: None (occurrence: None)
  Receive Date: 20110307
  Receipt Date: 20110225
  Transmission Date: 20110831
  Serious: Yes (Hospitalization)
  Sender: FDA-Public Use
  Company Number: US-ELI_LILLY_AND_COMPANY-US201102000620

PATIENT
  Sex: Male
  Weight: 125.17 kg

DRUGS (9)
  1. HYDROCHLOROTHIAZIDE [Concomitant]
  2. HUMALOG [Suspect]
     Dosage: 10 U, OTHER
  3. SIMVASTATIN [Concomitant]
  4. COUMADIN [Concomitant]
  5. LANTUS [Concomitant]
  6. HUMALOG [Suspect]
     Dosage: UNK, AS NEEDED
  7. JANUVIA [Concomitant]
  8. LISINOPRIL [Concomitant]
  9. HUMALOG [Suspect]
     Indication: TYPE 1 DIABETES MELLITUS
     Dosage: 5 U, OTHER
     Dates: start: 20110201, end: 20110201

REACTIONS (4)
  - BLOOD GLUCOSE INCREASED [None]
  - DEEP VEIN THROMBOSIS [None]
  - FOOT FRACTURE [None]
  - UNDERDOSE [None]
